FAERS Safety Report 24460549 (Version 1)
Quarter: 2024Q4

REPORT INFORMATION
  Report Type: Report from Study
  Country: US (occurrence: US)
  Receive Date: 20241018
  Receipt Date: 20241018
  Transmission Date: 20250115
  Serious: No
  Sender: ROCHE
  Company Number: US-ROCHE-3559560

PATIENT
  Age: 59 Year
  Sex: Female
  Weight: 141.97 kg

DRUGS (13)
  1. RITUXAN [Suspect]
     Active Substance: RITUXIMAB
     Indication: Rheumatoid arthritis
     Route: 041
  2. RITUXAN [Suspect]
     Active Substance: RITUXIMAB
     Indication: Rheumatoid arthritis
  3. GABAPENTIN [Concomitant]
     Active Substance: GABAPENTIN
  4. LEFLUNOMIDE [Concomitant]
     Active Substance: LEFLUNOMIDE
  5. TRAMADOL [Concomitant]
     Active Substance: TRAMADOL
  6. AMLODIPINE BESYLATE [Concomitant]
     Active Substance: AMLODIPINE BESYLATE
  7. DULOXETINE [Concomitant]
     Active Substance: DULOXETINE
  8. PREDNISONE [Concomitant]
     Active Substance: PREDNISONE
  9. MAGNESIUM [Concomitant]
     Active Substance: MAGNESIUM
  10. VITAMIN D3 [Concomitant]
     Active Substance: CHOLECALCIFEROL
  11. VITAMIN B12 [Concomitant]
     Active Substance: CYANOCOBALAMIN
  12. CALCIUM [Concomitant]
     Active Substance: CALCIUM
  13. CARVEDILOL [Concomitant]
     Active Substance: CARVEDILOL

REACTIONS (3)
  - Drug ineffective [Unknown]
  - Therapeutic product effect delayed [Not Recovered/Not Resolved]
  - Fibromyalgia [Not Recovered/Not Resolved]
